FAERS Safety Report 5639973-8 (Version None)
Quarter: 2008Q1

REPORT INFORMATION
  Report Type: 
  Country: None (occurrence: None)
  Receive Date: 20080226
  Receipt Date: 20080226
  Transmission Date: 20080703
  Serious: No
  Sender: FDA-Public Use
  Company Number: None

PATIENT

DRUGS (1)
  1. DELSYM [Suspect]
     Dates: start: 20071221, end: 20071222

REACTIONS (2)
  - PRURITUS [None]
  - URTICARIA [None]
